FAERS Safety Report 7464158-2 (Version None)
Quarter: 2011Q2

REPORT INFORMATION
  Report Type: 
  Country: None (occurrence: None)
  Receive Date: 20110506
  Receipt Date: 20110429
  Transmission Date: 20111010
  Serious: Yes (Hospitalization)
  Sender: FDA-Public Use
  Company Number: CA-GENENTECH-314563

PATIENT
  Sex: Female
  Weight: 78 kg

DRUGS (17)
  1. RITUXAN [Suspect]
     Indication: RHEUMATOID ARTHRITIS
     Dosage: 1000 MG, DAYS 1+15
     Route: 042
     Dates: start: 20100615, end: 20100630
  2. MORPHINE [Concomitant]
     Indication: PRODUCT USED FOR UNKNOWN INDICATION
     Dosage: UNK
  3. ACETAMINOPHEN [Concomitant]
     Indication: PRODUCT USED FOR UNKNOWN INDICATION
  4. CELEBREX [Concomitant]
     Indication: PRODUCT USED FOR UNKNOWN INDICATION
     Dosage: UNK
  5. HYDRA-ZIDE [Concomitant]
     Indication: PRODUCT USED FOR UNKNOWN INDICATION
     Dosage: UNK
  6. ACETAMINOPHEN [Concomitant]
     Indication: PREMEDICATION
     Dosage: 650 MG, UNK
     Route: 048
     Dates: start: 20100615, end: 20100615
  7. DIPHENHYDRAMINE [Concomitant]
     Dosage: 50 MG, UNK
     Route: 048
     Dates: start: 20100630, end: 20100630
  8. GLUCOPHAGE [Concomitant]
     Indication: PRODUCT USED FOR UNKNOWN INDICATION
     Dosage: UNK
  9. ACETAMINOPHEN [Concomitant]
     Dosage: 650 MG, UNK
     Route: 048
     Dates: start: 20080630, end: 20080630
  10. FOSAMAX [Concomitant]
     Indication: PRODUCT USED FOR UNKNOWN INDICATION
     Dosage: UNK
  11. NEXIUM [Concomitant]
     Indication: PREMEDICATION
     Dosage: 100 MG, UNK
     Route: 042
     Dates: start: 20100630, end: 20100630
  12. PREDNISONE [Concomitant]
     Indication: PRODUCT USED FOR UNKNOWN INDICATION
     Dosage: UNK
  13. METHYLPREDNISOLONE [Concomitant]
     Indication: PREMEDICATION
     Dosage: 100 MG, UNK
     Route: 042
     Dates: start: 20100615, end: 20100615
  14. CARBOCAL-D [Concomitant]
     Indication: PRODUCT USED FOR UNKNOWN INDICATION
     Dosage: UNK
  15. GLYBURIDE [Concomitant]
     Indication: PRODUCT USED FOR UNKNOWN INDICATION
     Dosage: UNK
  16. DIPHENHYDRAMINE [Concomitant]
     Indication: PREMEDICATION
     Dosage: 50 MG, UNK
     Route: 048
     Dates: start: 20100615, end: 20100615
  17. METHYLPREDNISOLONE [Concomitant]
     Dosage: 100 MG, UNK
     Route: 042
     Dates: start: 20100630, end: 20100630

REACTIONS (6)
  - VOMITING [None]
  - NAUSEA [None]
  - SYNOVITIS [None]
  - PYELONEPHRITIS [None]
  - ASTHENIA [None]
  - RHEUMATOID ARTHRITIS [None]
